FAERS Safety Report 14858097 (Version 1)
Quarter: 2018Q2

REPORT INFORMATION
  Report Type: Spontaneous
  Country: TR (occurrence: TR)
  Receive Date: 20180508
  Receipt Date: 20180508
  Transmission Date: 20180711
  Serious: Yes (Other)
  Sender: FDA-Public Use
  Company Number: TR-TEVA-2018-TR-888692

PATIENT
  Age: 54 Year
  Sex: Female

DRUGS (1)
  1. KENTERA PATCH 3.9 MG [Suspect]
     Active Substance: OXYBUTYNIN
     Indication: URINARY INCONTINENCE
     Dosage: 1 DF, BIW
     Route: 062

REACTIONS (6)
  - Pyrexia [Unknown]
  - Vomiting [Unknown]
  - Renal pain [Unknown]
  - Kidney enlargement [Unknown]
  - Renal impairment [Unknown]
  - Drug ineffective [Unknown]

NARRATIVE: CASE EVENT DATE: 201804
